FAERS Safety Report 5751055-3 (Version None)
Quarter: 2008Q2

REPORT INFORMATION
  Report Type: 
  Country: None (occurrence: None)
  Receive Date: 20080528
  Receipt Date: 20080519
  Transmission Date: 20081010
  Serious: Yes (Other)
  Sender: FDA-Public Use
  Company Number: US-JNJFOC-20080405956

PATIENT
  Sex: Male
  Weight: 65.77 kg

DRUGS (7)
  1. TOPAMAX [Suspect]
     Route: 048
  2. TOPAMAX [Suspect]
     Indication: EPILEPSY
     Dosage: 25 MG IN MORNING AND 75 MG IN EVENING
     Route: 048
  3. COUMADIN [Concomitant]
     Indication: MITRAL VALVE DISEASE
     Route: 048
  4. ALTACE [Concomitant]
     Indication: CARDIAC DISORDER
     Route: 048
  5. MAXZIDE [Concomitant]
     Indication: CARDIAC DISORDER
     Route: 048
  6. MAXZIDE [Concomitant]
     Indication: DIURETIC THERAPY
     Route: 048
  7. AMBIEN [Concomitant]

REACTIONS (5)
  - APHASIA [None]
  - BURNING SENSATION [None]
  - INSOMNIA [None]
  - MEMORY IMPAIRMENT [None]
  - WEIGHT DECREASED [None]
